FAERS Safety Report 5795865-5 (Version None)
Quarter: 2008Q3

REPORT INFORMATION
  Report Type: 
  Country: None (occurrence: None)
  Receive Date: 20080701
  Receipt Date: 20080617
  Transmission Date: 20090109
  Serious: Yes (Death, Hospitalization)
  Sender: FDA-Public Use
  Company Number: FR-NOVOPROD-275580

PATIENT
  Age: 73 Year
  Sex: Male

DRUGS (9)
  1. ACTRAPID [Suspect]
     Indication: INSULIN-REQUIRING TYPE 2 DIABETES MELLITUS
     Route: 058
     Dates: end: 20080331
  2. MIXTARD HUMAN 70/30 [Suspect]
     Indication: INSULIN-REQUIRING TYPE 2 DIABETES MELLITUS
     Route: 058
     Dates: end: 20080331
  3. MIXTARD HUMAN 70/30 [Suspect]
  4. BISOPROLOL FUMARATE [Concomitant]
     Dosage: 1.25 MG, QD
  5. ZYLORIC                            /00003301/ [Concomitant]
  6. MOPRAL                             /00661201/ [Concomitant]
     Dosage: 20 MG, QD
  7. PREVISCAN                          /00261401/ [Concomitant]
     Dosage: 20 MG, QD
  8. LASIX [Concomitant]
     Dosage: 500 MG, QD
  9. OROCAL                             /00108001/ [Concomitant]
     Dosage: 500 MG, QD

REACTIONS (7)
  - CEREBRAL ISCHAEMIA [None]
  - COMA [None]
  - DEPRESSED LEVEL OF CONSCIOUSNESS [None]
  - HEAD INJURY [None]
  - HYPOGLYCAEMIA [None]
  - HYPOTENSION [None]
  - RESPIRATORY FAILURE [None]
